FAERS Safety Report 6127896-X (Version None)
Quarter: 2009Q1

REPORT INFORMATION
  Report Type: 
  Country: None (occurrence: None)
  Receive Date: 20090320
  Receipt Date: 20090320
  Transmission Date: 20090719
  Serious: Yes (Disabling, Other)
  Sender: FDA-Public Use
  Company Number: None

PATIENT
  Age: 37 Year
  Sex: Female
  Weight: 8.7 kg

DRUGS (2)
  1. CYMBALTA [Suspect]
     Indication: DELUSIONAL DISORDER, SOMATIC TYPE
     Dosage: 30 MG 1 ADAY 7 DAYS; THEN 60 MG
     Dates: start: 20070108
  2. CYMBALTA [Suspect]
     Indication: DELUSIONAL DISORDER, UNSPECIFIED TYPE
     Dosage: 30 MG 1 ADAY 7 DAYS; THEN 60 MG
     Dates: start: 20070108

REACTIONS (32)
  - ANXIETY [None]
  - ASPHYXIA [None]
  - BLISTER [None]
  - CHEST PAIN [None]
  - CONTUSION [None]
  - DIARRHOEA [None]
  - DIZZINESS [None]
  - DRUG HYPERSENSITIVITY [None]
  - DRUG INEFFECTIVE [None]
  - DYSPEPSIA [None]
  - ERYTHEMA [None]
  - FEELING ABNORMAL [None]
  - GAIT DISTURBANCE [None]
  - HALLUCINATION, AUDITORY [None]
  - HEADACHE [None]
  - HEART RATE INCREASED [None]
  - HYPERSENSITIVITY [None]
  - HYPOAESTHESIA [None]
  - INSOMNIA [None]
  - MALAISE [None]
  - MIGRAINE [None]
  - MUSCLE TWITCHING [None]
  - MYDRIASIS [None]
  - NECK PAIN [None]
  - NERVOUS SYSTEM DISORDER [None]
  - NEURALGIA [None]
  - PARAESTHESIA [None]
  - SHOCK [None]
  - TREMOR [None]
  - VISUAL IMPAIRMENT [None]
  - VOMITING [None]
  - YAWNING [None]
